FAERS Safety Report 8580609 (Version 2)
Quarter: 2012Q4

REPORT INFORMATION
  Report Type: 
  Country: PL (occurrence: PL)
  Receive Date: 20120525
  Receipt Date: 20121114
  Transmission Date: 20130627
  Serious: Yes (Hospitalization, Other)
  Sender: FDA-Public Use
  Company Number: PL-ACTELION-A-CH2012-65659

PATIENT
  Age: 24 Year
  Sex: Female
  Weight: 40 kg

DRUGS (1)
  1. TRACLEER [Suspect]
     Indication: PULMONARY ARTERIAL HYPERTENSION
     Dosage: 125 mg, bid
     Route: 048
     Dates: start: 20110308, end: 201112

REACTIONS (5)
  - Premature delivery [Unknown]
  - Premature baby [Unknown]
  - Pregnancy [Unknown]
  - Caesarean section [Unknown]
  - Exposure during pregnancy [None]
